FAERS Safety Report 7630472-0 (Version None)
Quarter: 2011Q3

REPORT INFORMATION
  Report Type: 
  Country: None (occurrence: None)
  Receive Date: 20110722
  Receipt Date: 20110712
  Transmission Date: 20111222
  Serious: Yes (Other)
  Sender: FDA-Public Use
  Company Number: BR-US-EMD SERONO, INC.-7070575

PATIENT
  Sex: Female

DRUGS (5)
  1. LOVAZA [Concomitant]
  2. CLONAZEPAM [Concomitant]
  3. REBIF [Suspect]
     Indication: RELAPSING-REMITTING MULTIPLE SCLEROSIS
     Dates: start: 20110506
  4. TOPIRAMATE [Concomitant]
  5. FLUOXETINE [Concomitant]

REACTIONS (6)
  - GLAUCOMA [None]
  - PAIN [None]
  - INJECTION SITE PAIN [None]
  - VERTIGO [None]
  - HEADACHE [None]
  - NAUSEA [None]
